FAERS Safety Report 9393316 (Version 2)
Quarter: 2013Q3

REPORT INFORMATION
  Report Type: Spontaneous
  Country: PL (occurrence: PL)
  Receive Date: 20130710
  Receipt Date: 20130816
  Transmission Date: 20140515
  Serious: Yes (Other)
  Sender: FDA-Public Use
  Company Number: PL-PERRIGO-13PL006913

PATIENT
  Sex: Female

DRUGS (9)
  1. IBUPROFEN 200 MG 604 [Suspect]
     Indication: LIGAMENT SPRAIN
     Dosage: 1200 MG, DAILY
     Route: 048
  2. ATENOLOL [Suspect]
     Indication: ARRHYTHMIA SUPRAVENTRICULAR
     Dosage: 25 MG, BID
     Route: 048
  3. ATENOLOL [Suspect]
     Indication: FEAR
     Dosage: 100 MG, QD
     Route: 048
  4. ATENOLOL [Suspect]
     Indication: ANXIETY
  5. FLUDROCORTISONE [Concomitant]
     Indication: ADRENAL INSUFFICIENCY
     Dosage: 50 ?G, QD
     Route: 048
  6. FLUDROCORTISONE [Concomitant]
     Dosage: 100 ?G, QD
     Route: 048
  7. FLUDROCORTISONE [Concomitant]
     Dosage: 200 ?G, QD
     Route: 048
  8. FLUDROCORTISONE [Concomitant]
     Dosage: 100 ?G, QD
     Route: 048
  9. LEVOTHYROXINE [Concomitant]
     Indication: AUTOIMMUNE THYROIDITIS
     Dosage: 100 ?G, QD
     Route: 048

REACTIONS (1)
  - Hypoaldosteronism [Recovered/Resolved]
